FAERS Safety Report 10629280 (Version 1)
Quarter: 2014Q4

REPORT INFORMATION
  Report Type: Spontaneous
  Country: US (occurrence: US)
  Receive Date: 20141205
  Receipt Date: 20141205
  Transmission Date: 20150529
  Serious: No
  Sender: FDA-Public Use
  Company Number: US-BRISTOL-MYERS SQUIBB COMPANY-21335831

PATIENT
  Age: 53 Year
  Sex: Female

DRUGS (2)
  1. ABILIFY [Suspect]
     Active Substance: ARIPIPRAZOLE
     Indication: BIPOLAR DISORDER
  2. LATUDA [Concomitant]
     Active Substance: LURASIDONE HYDROCHLORIDE

REACTIONS (6)
  - Dizziness [Unknown]
  - Nausea [Unknown]
  - Insomnia [Unknown]
  - Drug dose omission [Unknown]
  - Malaise [Unknown]
  - Abdominal pain upper [Unknown]
